FAERS Safety Report 4510445-7 (Version None)
Quarter: 2004Q4

REPORT INFORMATION
  Report Type: 
  Country: None (occurrence: None)
  Receive Date: 20041122
  Receipt Date: 20041028
  Transmission Date: 20050328
  Serious: Yes (Death)
  Sender: FDA-Public Use
  Company Number: 2004S1000246

PATIENT
  Age: 68 Year
  Sex: Male
  Weight: 89 kg

DRUGS (11)
  1. CUBICIN [Suspect]
     Indication: CENTRAL LINE INFECTION
     Dosage: 500 MG;Q24H;IV
     Route: 042
     Dates: start: 20041001, end: 20041027
  2. CUBICIN [Suspect]
     Indication: STAPHYLOCOCCAL INFECTION
     Dosage: 500 MG;Q24H;IV
     Route: 042
     Dates: start: 20041001, end: 20041027
  3. THALIDOMIDE [Concomitant]
  4. VANCOMYCIN [Concomitant]
  5. GATIFLOXACIN [Concomitant]
  6. LEVOFLOXACIN [Concomitant]
  7. ACYCLOVIR [Concomitant]
  8. RANITIDINE [Concomitant]
  9. FENTANYL [Concomitant]
  10. HYDROMORPHONE [Concomitant]
  11. OXYCODONE HCL [Concomitant]

REACTIONS (10)
  - ASTHENIA [None]
  - DISEASE PROGRESSION [None]
  - DYSARTHRIA [None]
  - DYSPHAGIA [None]
  - FALL [None]
  - GENERAL PHYSICAL HEALTH DETERIORATION [None]
  - MULTIPLE MYELOMA [None]
  - REFUSAL OF TREATMENT BY RELATIVE [None]
  - RIB FRACTURE [None]
  - THROMBOCYTOPENIA [None]
